FAERS Safety Report 23149218 (Version 1)
Quarter: 2023Q4

REPORT INFORMATION
  Report Type: Spontaneous
  Country: US (occurrence: US)
  Receive Date: 20231106
  Receipt Date: 20231106
  Transmission Date: 20240109
  Serious: No
  Sender: FDA-Public Use
  Company Number: US-BRISTOL-MYERS SQUIBB COMPANY-2023-154059

PATIENT
  Age: 77 Year
  Sex: Male

DRUGS (2)
  1. REVLIMID [Suspect]
     Active Substance: LENALIDOMIDE
     Indication: Plasma cell myeloma in remission
     Dosage: QD FOR 21 DAYS ON THEN 7 DAYS OFF
     Route: 048
  2. COVID-19 VACCINE NOS [Suspect]
     Active Substance: COVID-19 VACCINE NOS
     Indication: Product used for unknown indication

REACTIONS (4)
  - Disturbance in attention [Recovering/Resolving]
  - Lethargy [Recovering/Resolving]
  - Decreased appetite [Recovering/Resolving]
  - Hiccups [Recovered/Resolved]
